FAERS Safety Report 18093420 (Version 1)
Quarter: 2020Q3

REPORT INFORMATION
  Report Type: Spontaneous
  Country: CN (occurrence: CN)
  Receive Date: 20200730
  Receipt Date: 20200730
  Transmission Date: 20201103
  Serious: Yes (Other)
  Sender: FDA-Public Use
  Company Number: CN-BAYER-2020-151684

PATIENT
  Age: 62 Year
  Sex: Male
  Weight: 50 kg

DRUGS (3)
  1. NEXAVAR [Suspect]
     Active Substance: SORAFENIB
     Indication: METASTASES TO LUNG
  2. NEXAVAR [Suspect]
     Active Substance: SORAFENIB
     Indication: HEPATIC CANCER
     Dosage: 0.4 G, QD
     Route: 048
     Dates: start: 20200604, end: 20200719
  3. NEXAVAR [Suspect]
     Active Substance: SORAFENIB
     Indication: METASTASES TO BONE

REACTIONS (2)
  - Myelosuppression [Not Recovered/Not Resolved]
  - Off label use [None]

NARRATIVE: CASE EVENT DATE: 20200604
